FAERS Safety Report 15569913 (Version 1)
Quarter: 2018Q4

REPORT INFORMATION
  Report Type: Spontaneous
  Country: HR (occurrence: HR)
  Receive Date: 20181031
  Receipt Date: 20181031
  Transmission Date: 20190205
  Serious: Yes (Life-Threatening, Other)
  Sender: FDA-Public Use
  Company Number: HR-TEVA-2018-HR-969830

PATIENT
  Age: 78 Year
  Sex: Male

DRUGS (1)
  1. SANOSEN [Suspect]
     Active Substance: CLOZAPINE
     Indication: ORGANIC BRAIN SYNDROME
     Dosage: 75 MILLIGRAM DAILY;
     Route: 048
     Dates: start: 201809

REACTIONS (3)
  - Tongue oedema [Recovering/Resolving]
  - Angioedema [Recovering/Resolving]
  - Dysphonia [Recovering/Resolving]

NARRATIVE: CASE EVENT DATE: 201810
